FAERS Safety Report 4533023-2 (Version None)
Quarter: 2005Q1

REPORT INFORMATION
  Report Type: 
  Country: None (occurrence: None)
  Receive Date: 20041206
  Receipt Date: 20041011
  Transmission Date: 20050727
  Serious: No
  Sender: FDA-Public Use
  Company Number: USA041080662

PATIENT
  Age: 47 Year
  Sex: Female

DRUGS (1)
  1. CYMBALTA [Suspect]
     Indication: MIGRAINE
     Dosage: 20 MG/2 IN THE MORNING
     Dates: start: 20041008, end: 20041009

REACTIONS (4)
  - CHEST DISCOMFORT [None]
  - DERMATITIS ALLERGIC [None]
  - HEADACHE [None]
  - HYPERSENSITIVITY [None]
